FAERS Safety Report 16461455 (Version 1)
Quarter: 2019Q2

REPORT INFORMATION
  Report Type: Spontaneous
  Country: ES (occurrence: ES)
  Receive Date: 20190621
  Receipt Date: 20190621
  Transmission Date: 20190711
  Serious: Yes (Death)
  Sender: FDA-Public Use
  Company Number: ES-ROCHE-2327767

PATIENT
  Age: 53 Year
  Sex: Female
  Weight: 65 kg

DRUGS (9)
  1. DOXORUBICIN [Concomitant]
     Active Substance: DOXORUBICIN
     Dosage: SECOND DOSE FROM 28/FEB/2019-27/MAR/2019
     Route: 065
     Dates: start: 20181016
  2. CISPLATIN. [Concomitant]
     Active Substance: CISPLATIN
     Route: 065
     Dates: start: 20190228, end: 20190327
  3. RITUXIMAB. [Suspect]
     Active Substance: RITUXIMAB
     Route: 065
     Dates: start: 20190228, end: 20190323
  4. CYCLOPHOSPHAMIDE. [Concomitant]
     Active Substance: CYCLOPHOSPHAMIDE
     Dosage: SECOND DOSE FROM 28/FEB/2019-27/MAR/2019
     Route: 065
     Dates: start: 20181016
  5. DEXAMETHASONE. [Concomitant]
     Active Substance: DEXAMETHASONE
     Route: 065
     Dates: start: 20190228, end: 20190327
  6. PREDNISONE. [Concomitant]
     Active Substance: PREDNISONE
     Dosage: SECOND DOSE FROM 28/FEB/2019-27/MAR/2019
     Route: 065
     Dates: start: 20181016
  7. RITUXIMAB. [Suspect]
     Active Substance: RITUXIMAB
     Indication: DIFFUSE LARGE B-CELL LYMPHOMA
     Route: 065
     Dates: start: 20181016, end: 20190201
  8. VINCRISTINE [Concomitant]
     Active Substance: VINCRISTINE
     Dosage: SECOND DOSE FROM 28/FEB/2019-27/MAR/2019
     Route: 065
     Dates: start: 20181016
  9. CYTARABINE. [Concomitant]
     Active Substance: CYTARABINE
     Route: 065
     Dates: start: 20190228, end: 20190327

REACTIONS (9)
  - Death [Fatal]
  - Pyrexia [Unknown]
  - Cachexia [Unknown]
  - White blood cell count abnormal [Unknown]
  - Haemoglobin abnormal [Unknown]
  - General physical health deterioration [Unknown]
  - Platelet disorder [Unknown]
  - Neutrophil count abnormal [Unknown]
  - Blood lactate dehydrogenase abnormal [Unknown]

NARRATIVE: CASE EVENT DATE: 20190527
